FAERS Safety Report 8254643-8 (Version None)
Quarter: 2012Q2

REPORT INFORMATION
  Report Type: 
  Country: None (occurrence: None)
  Receive Date: 20120403
  Receipt Date: 20120323
  Transmission Date: 20120825
  Serious: Yes (Hospitalization)
  Sender: FDA-Public Use
  Company Number: US-BAYER-2011-098076

PATIENT
  Age: 23 Year
  Sex: Female
  Weight: 115.65 kg

DRUGS (5)
  1. ORTHO TRI-CYCLEN [Concomitant]
  2. YASMIN [Suspect]
     Indication: CONTRACEPTION
     Dosage: UNK UNK, QD
     Route: 048
     Dates: start: 20020521, end: 20021101
  3. IBUPROFEN [Concomitant]
  4. INHALER NOS [Concomitant]
  5. NAPROXEN [Concomitant]

REACTIONS (3)
  - PAIN [None]
  - PULMONARY EMBOLISM [None]
  - DYSPNOEA [None]
